FAERS Safety Report 10990696 (Version 1)
Quarter: 2015Q1

REPORT INFORMATION
  Report Type: Spontaneous
  Country: US (occurrence: None)
  Receive Date: 20150326
  Receipt Date: 20150326
  Transmission Date: 20150721
  Serious: No
  Sender: FDA-Public Use
  Company Number: 1000073409

PATIENT
  Sex: Female

DRUGS (1)
  1. LINZESS [Suspect]
     Active Substance: LINACLOTIDE
     Indication: CONSTIPATION
     Route: 048
     Dates: start: 20141223, end: 20141230

REACTIONS (6)
  - Burning sensation [None]
  - Cough [None]
  - Mouth ulceration [None]
  - Chills [None]
  - Laryngitis [None]
  - Headache [None]

NARRATIVE: CASE EVENT DATE: 20141227
